FAERS Safety Report 9579370 (Version 1)
Quarter: 2013Q4

REPORT INFORMATION
  Report Type: Spontaneous
  Country: US (occurrence: US)
  Receive Date: 20131001
  Receipt Date: 20131001
  Transmission Date: 20140711
  Serious: No
  Sender: FDA-Public Use
  Company Number: US-AMGEN-USASP2013017390

PATIENT
  Age: 73 Year
  Sex: Female
  Weight: 78.91 kg

DRUGS (4)
  1. ENBREL [Suspect]
     Indication: PRODUCT USED FOR UNKNOWN INDICATION
     Dosage: 25 MG, 2 TIMES A WEEK 72-98 HOURS APART
     Route: 058
  2. EXFORGE [Concomitant]
     Dosage: 5-160 MG, UNK
  3. TRILIPIX [Concomitant]
     Dosage: 45 MG, UNK
  4. CENTRUM SILVER                     /02363801/ [Concomitant]
     Dosage: UNK

REACTIONS (4)
  - Sinus congestion [Recovered/Resolved]
  - Respiratory tract congestion [Recovered/Resolved]
  - Pyrexia [Recovered/Resolved]
  - Upper respiratory tract infection [Recovered/Resolved]
